FAERS Safety Report 11876294 (Version 1)
Quarter: 2015Q4

REPORT INFORMATION
  Report Type: Spontaneous
  Country: US (occurrence: US)
  Receive Date: 20151229
  Receipt Date: 20151229
  Transmission Date: 20160305
  Serious: Yes (Hospitalization)
  Sender: FDA-Public Use
  Company Number: US-SA-2015SA221480

PATIENT
  Age: 85 Year
  Sex: Male
  Weight: 89.8 kg

DRUGS (2)
  1. PLAVIX [Suspect]
     Active Substance: CLOPIDOGREL BISULFATE
     Indication: ANTICOAGULANT THERAPY
     Route: 048
     Dates: start: 2007, end: 201508
  2. OMEPRAZOLE. [Concomitant]
     Active Substance: OMEPRAZOLE
     Indication: BARRETT^S OESOPHAGUS
     Dosage: APPROX.  8 YRS  AGO?20MG?60 MG
     Route: 048
     Dates: start: 2007, end: 201511

REACTIONS (4)
  - Mental impairment [Recovering/Resolving]
  - Drug ineffective [Unknown]
  - Ischaemic stroke [Unknown]
  - Muscular weakness [Recovering/Resolving]

NARRATIVE: CASE EVENT DATE: 20150814
